FAERS Safety Report 17251315 (Version 1)
Quarter: 2020Q1

REPORT INFORMATION
  Report Type: Spontaneous
  Country: US (occurrence: US)
  Receive Date: 20200109
  Receipt Date: 20200109
  Transmission Date: 20200409
  Serious: No
  Sender: FDA-Public Use
  Company Number: US-GILEAD-2019-0441729

PATIENT
  Age: 66 Year
  Sex: Male
  Weight: 70.75 kg

DRUGS (1)
  1. EPCLUSA [Suspect]
     Active Substance: SOFOSBUVIR\VELPATASVIR
     Indication: CHRONIC HEPATITIS C
     Dosage: 1 DOSAGE FORM, QD
     Route: 065
     Dates: start: 20191125

REACTIONS (4)
  - Blister [Recovered/Resolved]
  - Pain [Recovering/Resolving]
  - Feeding disorder [Recovering/Resolving]
  - Mastication disorder [Recovering/Resolving]

NARRATIVE: CASE EVENT DATE: 20191201
